FAERS Safety Report 7485172-7 (Version None)
Quarter: 2011Q2

REPORT INFORMATION
  Report Type: 
  Country: None (occurrence: None)
  Receive Date: 20110517
  Receipt Date: 20101203
  Transmission Date: 20111010
  Serious: Yes (Other)
  Sender: FDA-Public Use
  Company Number: US-BAYER-2010-001137

PATIENT
  Sex: Female

DRUGS (1)
  1. ALEVE (CAPLET) [Suspect]
     Dosage: 3-4 TABLETS IN 1.5 DAYS
     Route: 048

REACTIONS (5)
  - LYMPHADENOPATHY [None]
  - CHILLS [None]
  - PYREXIA [None]
  - EAR PAIN [None]
  - ERYTHEMA [None]
